FAERS Safety Report 9629244 (Version 1)
Quarter: 2013Q4

REPORT INFORMATION
  Report Type: Spontaneous
  Country: US (occurrence: US)
  Receive Date: 20131017
  Receipt Date: 20131017
  Transmission Date: 20140711
  Serious: No
  Sender: FDA-Public Use
  Company Number: US-ASTRAZENECA-2013SE73435

PATIENT
  Age: 939 Month
  Sex: Female
  Weight: 98 kg

DRUGS (3)
  1. CRESTOR [Suspect]
     Indication: BLOOD CHOLESTEROL INCREASED
     Route: 048
     Dates: start: 201308, end: 201309
  2. LEVOTHYROXINE [Concomitant]
     Indication: HYPOTHYROIDISM
  3. PREDNISONE [Concomitant]

REACTIONS (2)
  - Chromaturia [Recovered/Resolved]
  - Myalgia [Recovered/Resolved]
